FAERS Safety Report 9451609 (Version 1)
Quarter: 2013Q3

REPORT INFORMATION
  Report Type: Spontaneous
  Country: IT (occurrence: IT)
  Receive Date: 20130811
  Receipt Date: 20130811
  Transmission Date: 20140515
  Serious: Yes (Death)
  Sender: FDA-Public Use
  Company Number: IT-CUBIST PHARMACEUTICALS, INC.-2013CBST000368

PATIENT
  Age: 1 Year
  Sex: Female

DRUGS (3)
  1. CUBICIN [Suspect]
     Indication: BACTERIAL INFECTION
     Dosage: 6 MG/KG, Q24H
     Route: 042
  2. CUBICIN [Suspect]
     Indication: OFF LABEL USE
  3. CARDIOVASCULAR SYSTEM DRUGS [Concomitant]
     Indication: CARDIOVASCULAR DISORDER
     Dosage: UNK UNK, UNK

REACTIONS (2)
  - Pre-existing disease [Fatal]
  - Cardiomyopathy [Fatal]
